FAERS Safety Report 8293397-6 (Version None)
Quarter: 2012Q2

REPORT INFORMATION
  Report Type: 
  Country: None (occurrence: None)
  Receive Date: 20120417
  Receipt Date: 20111031
  Transmission Date: 20120825
  Serious: No
  Sender: FDA-Public Use
  Company Number: US-ASTRAZENECA-2009UW01519

PATIENT
  Age: 62 Year
  Sex: Male
  Weight: 90.7 kg

DRUGS (7)
  1. ASPIRIN [Concomitant]
  2. ATIVAN [Concomitant]
  3. NEXIUM [Suspect]
     Route: 048
  4. VERAPAMIL [Concomitant]
     Indication: BLOOD PRESSURE ABNORMAL
  5. NEXIUM [Suspect]
     Indication: GASTROOESOPHAGEAL REFLUX DISEASE
     Route: 048
  6. ZOCOR [Concomitant]
     Indication: BLOOD PRESSURE ABNORMAL
  7. LOSARTAN POTASSIUM [Concomitant]
     Indication: BLOOD PRESSURE ABNORMAL

REACTIONS (3)
  - PRODUCT QUALITY ISSUE [None]
  - NAUSEA [None]
  - DRUG PRESCRIBING ERROR [None]
